FAERS Safety Report 25800084 (Version 1)
Quarter: 2025Q3

REPORT INFORMATION
  Report Type: Spontaneous
  Country: CN (occurrence: CN)
  Receive Date: 20250914
  Receipt Date: 20250914
  Transmission Date: 20251020
  Serious: Yes (Hospitalization)
  Sender: ABBVIE
  Company Number: CN-ABBVIE-6453585

PATIENT
  Age: 69 Year
  Sex: Male
  Weight: 62 kg

DRUGS (5)
  1. VENETOCLAX [Suspect]
     Active Substance: VENETOCLAX
     Indication: Neoplasm
     Dosage: DOSAGE: 100 MG 100 MILLIGRAM D1
     Route: 048
     Dates: start: 20250820, end: 20250820
  2. VENETOCLAX [Suspect]
     Active Substance: VENETOCLAX
     Indication: Neoplasm
     Dosage: 200 MILLIGRAM D2
     Route: 048
     Dates: start: 20250821, end: 20250821
  3. VENETOCLAX [Suspect]
     Active Substance: VENETOCLAX
     Indication: Neoplasm
     Dosage: 400 MILLIGRAM D3
     Route: 048
     Dates: start: 20250822, end: 20250903
  4. STERILE WATER [Concomitant]
     Active Substance: WATER
     Indication: Vehicle solution use
     Dosage: 4 ML
     Route: 058
     Dates: start: 20250820, end: 20250827
  5. AZACITIDINE [Suspect]
     Active Substance: AZACITIDINE
     Indication: Neoplasm
     Dosage: 120 MILLIGRAM
     Route: 058
     Dates: start: 20250820, end: 20250827

REACTIONS (1)
  - Myelosuppression [Unknown]

NARRATIVE: CASE EVENT DATE: 20250902
